FAERS Safety Report 17989183 (Version 2)
Quarter: 2020Q3

REPORT INFORMATION
  Report Type: Report from Study
  Country: None (occurrence: ES)
  Receive Date: 20200707
  Receipt Date: 20200708
  Transmission Date: 20201103
  Serious: Yes (Hospitalization)
  Sender: FDA-Public Use
  Company Number: ES-CLINIGEN GROUP PLC/ CLINIGEN HEALTHCARE LTD-ES-CLGN-20-00273

PATIENT
  Age: 46 Year
  Sex: Male
  Weight: 79.8 kg

DRUGS (5)
  1. FLUDARABINE [Suspect]
     Active Substance: FLUDARABINE PHOSPHATE
     Indication: NEOPLASM
     Route: 042
     Dates: start: 20200304, end: 20200305
  2. PROLEUKIN [Suspect]
     Active Substance: ALDESLEUKIN
     Indication: NEOPLASM
     Route: 042
     Dates: start: 20200309, end: 20200310
  3. CYCLOPHOSPHAMIDE. [Suspect]
     Active Substance: CYCLOPHOSPHAMIDE
     Indication: NEOPLASM
     Route: 042
     Dates: start: 20200302, end: 20200303
  4. PEMBROLIZUMAB. [Suspect]
     Active Substance: PEMBROLIZUMAB
     Indication: NEOPLASM
     Route: 042
     Dates: start: 20200226, end: 20200226
  5. LN?145 [Suspect]
     Active Substance: LIFILEUCEL
     Indication: NEOPLASM
     Route: 042
     Dates: start: 20200309, end: 20200309

REACTIONS (1)
  - Cytokine release syndrome [Recovered/Resolved]

NARRATIVE: CASE EVENT DATE: 20200311
